FAERS Safety Report 5604529-X (Version None)
Quarter: 2008Q1

REPORT INFORMATION
  Report Type: 
  Country: None (occurrence: None)
  Receive Date: 20080123
  Receipt Date: 20080114
  Transmission Date: 20080703
  Serious: Yes (Other)
  Sender: FDA-Public Use
  Company Number: 2008001354

PATIENT
  Age: 15 Year
  Sex: Female

DRUGS (1)
  1. SUDACARE SHOWER SOOTHERS (NO ACTIVE INGREDIENT) [Suspect]
     Dosage: 1, ONCE, TOPICAL
     Route: 061
     Dates: start: 20080110, end: 20080110

REACTIONS (2)
  - ACCIDENTAL EXPOSURE [None]
  - APPLICATION SITE BURN [None]
